FAERS Safety Report 13936762 (Version 1)
Quarter: 2017Q3

REPORT INFORMATION
  Report Type: Spontaneous
  Country: US (occurrence: US)
  Receive Date: 20170905
  Receipt Date: 20170905
  Transmission Date: 20171127
  Serious: Yes (Hospitalization)
  Sender: FDA-Public Use
  Company Number: US-ELI_LILLY_AND_COMPANY-US201708011507

PATIENT
  Sex: Female

DRUGS (4)
  1. LANTUS [Concomitant]
     Active Substance: INSULIN GLARGINE
     Indication: PRODUCT USED FOR UNKNOWN INDICATION
     Dosage: UNK, UNKNOWN
     Route: 065
  2. HUMALOG [Suspect]
     Active Substance: INSULIN LISPRO
     Dosage: UNK, UNKNOWN
     Route: 065
     Dates: start: 20170823
  3. LINZESS [Concomitant]
     Active Substance: LINACLOTIDE
     Indication: PRODUCT USED FOR UNKNOWN INDICATION
     Dosage: UNK, UNKNOWN
     Route: 065
  4. HUMALOG [Suspect]
     Active Substance: INSULIN LISPRO
     Indication: PRODUCT USED FOR UNKNOWN INDICATION
     Dosage: UNK UNK, UNKNOWN
     Route: 065
     Dates: start: 2003

REACTIONS (11)
  - Road traffic accident [Unknown]
  - Cardiac discomfort [Unknown]
  - Flatulence [Unknown]
  - Abdominal distension [Unknown]
  - Feeling abnormal [Unknown]
  - Blood glucose increased [Unknown]
  - Blood glucose decreased [Unknown]
  - Dyspepsia [Unknown]
  - Incorrect drug administration duration [Unknown]
  - Asthenia [Unknown]
  - Feeling jittery [Unknown]

NARRATIVE: CASE EVENT DATE: 2003
